FAERS Safety Report 9798225 (Version 1)
Quarter: 2014Q1

REPORT INFORMATION
  Report Type: Spontaneous
  Country: US (occurrence: None)
  Receive Date: 20140102
  Receipt Date: 20140102
  Transmission Date: 20141002
  Serious: Yes (Other)
  Sender: FDA-Public Use
  Company Number: ZYD-13-AE-350

PATIENT
  Age: 66 Year
  Sex: Female

DRUGS (6)
  1. VENLAFAXINE [Suspect]
     Indication: DEPRESSION
     Route: 048
     Dates: start: 201301, end: 20131112
  2. BISOPROLOL/HCTZ [Concomitant]
  3. ZYRTEC [Concomitant]
  4. SPIRIVA [Concomitant]
  5. SYMBICORT [Concomitant]
  6. VENTOLIN [Concomitant]

REACTIONS (5)
  - Pruritus [None]
  - Crying [None]
  - Agitation [None]
  - Paralysis [None]
  - Visual brightness [None]
